FAERS Safety Report 8962438 (Version 2)
Quarter: 2013Q1

REPORT INFORMATION
  Report Type: Spontaneous
  Country: CA (occurrence: CA)
  Receive Date: 20121213
  Receipt Date: 20130308
  Transmission Date: 20140127
  Serious: Yes (Hospitalization)
  Sender: FDA-Public Use
  Company Number: CA-BRISTOL-MYERS SQUIBB COMPANY-17035890

PATIENT
  Age: 73 Year
  Sex: Female

DRUGS (2)
  1. SPRYCEL [Suspect]
     Indication: CHRONIC MYELOID LEUKAEMIA
     Route: 048
     Dates: start: 20120330, end: 20121129
  2. ZYLOPRIM [Concomitant]

REACTIONS (6)
  - Pleural effusion [Recovering/Resolving]
  - Pulmonary oedema [Unknown]
  - Hypertension [Unknown]
  - Heart rate increased [Unknown]
  - Rash papular [Unknown]
  - Hair texture abnormal [Unknown]
